FAERS Safety Report 4940162-0 (Version None)
Quarter: 2006Q1

REPORT INFORMATION
  Report Type: 
  Country: None (occurrence: None)
  Receive Date: 20060307
  Receipt Date: 20060222
  Transmission Date: 20060701
  Serious: Yes (Hospitalization)
  Sender: FDA-Public Use
  Company Number: 221297

PATIENT
  Age: 39 Year
  Sex: Female
  Weight: 80.3 kg

DRUGS (2)
  1. HERCEPTIN [Suspect]
     Indication: BREAST CANCER METASTATIC
     Dosage: 2 MG/KG, 1/WEEK, INTRAVENOUS
     Route: 042
     Dates: start: 20051201
  2. TAXOL [Concomitant]

REACTIONS (3)
  - BACK PAIN [None]
  - NEPHROLITHIASIS [None]
  - PREGNANCY TEST FALSE POSITIVE [None]
